FAERS Safety Report 13757672 (Version 3)
Quarter: 2017Q3

REPORT INFORMATION
  Report Type: Spontaneous
  Country: US (occurrence: US)
  Receive Date: 20170717
  Receipt Date: 20170825
  Transmission Date: 20171127
  Serious: Yes (Death, Hospitalization, Other)
  Sender: FDA-Public Use
  Company Number: US-009507513-1707USA001443

PATIENT
  Sex: Female

DRUGS (1)
  1. ZINPLAVA [Suspect]
     Active Substance: BEZLOTOXUMAB
     Dosage: A DOSE, UNK
     Route: 042
     Dates: start: 20170701

REACTIONS (5)
  - Adverse event [Unknown]
  - Pyrexia [Unknown]
  - Pain [Unknown]
  - Drug prescribing error [Unknown]
  - Death [Fatal]

NARRATIVE: CASE EVENT DATE: 201707
